FAERS Safety Report 15304900 (Version 3)
Quarter: 2018Q3

REPORT INFORMATION
  Report Type: Report from Study
  Country: None (occurrence: SE)
  Receive Date: 20180822
  Receipt Date: 20180828
  Transmission Date: 20181010
  Serious: Yes (Life-Threatening, Hospitalization)
  Sender: FDA-Public Use
  Company Number: SE-ABBVIE-18S-150-2456602-00

PATIENT
  Age: 55 Year
  Sex: Female

DRUGS (4)
  1. DUODOPA [Suspect]
     Active Substance: CARBIDOPA\LEVODOPA
     Route: 050
     Dates: start: 20150209
  2. DUODOPA [Suspect]
     Active Substance: CARBIDOPA\LEVODOPA
     Indication: PARKINSON^S DISEASE
     Route: 050
     Dates: start: 20141201
  3. DUODOPA [Suspect]
     Active Substance: CARBIDOPA\LEVODOPA
     Dosage: CURRENT DOSE: CD: 1.7 ML/H
     Route: 050
     Dates: end: 2018
  4. DUODOPA [Suspect]
     Active Substance: CARBIDOPA\LEVODOPA
     Dosage: CONTINUOUS DOSE: 1.1 ML/H
     Route: 050
     Dates: start: 2018

REACTIONS (9)
  - Incorrect dose administered [Not Recovered/Not Resolved]
  - Mental impairment [Recovering/Resolving]
  - Gait inability [Recovering/Resolving]
  - Stoma site infection [Recovering/Resolving]
  - Urinary tract infection [Recovering/Resolving]
  - Musculoskeletal stiffness [Recovering/Resolving]
  - Hyperkinesia [Not Recovered/Not Resolved]
  - Dehydration [Recovering/Resolving]
  - Pyrexia [Recovered/Resolved]

NARRATIVE: CASE EVENT DATE: 2018
